FAERS Safety Report 4973861-5 (Version None)
Quarter: 2006Q2

REPORT INFORMATION
  Report Type: 
  Country: None (occurrence: None)
  Receive Date: 20060415
  Receipt Date: 20060120
  Transmission Date: 20061013
  Serious: Yes (Death, Congenital Anomaly)
  Sender: FDA-Public Use
  Company Number: DE-ABBOTT-06P-062-0323007-00

PATIENT
  Sex: Male
  Weight: 0.94 kg

DRUGS (1)
  1. ERGENYL CHRONO TABLETS [Suspect]
     Indication: DRUG EXPOSURE DURING PREGNANCY

REACTIONS (8)
  - ARNOLD-CHIARI MALFORMATION [None]
  - CEREBELLAR HYPOPLASIA [None]
  - CEREBRAL HAEMORRHAGE NEONATAL [None]
  - CONGENITAL CEREBELLAR AGENESIS [None]
  - DRUG EXPOSURE DURING PREGNANCY [None]
  - PREMATURE BABY [None]
  - PREMATURE LABOUR [None]
  - SPINA BIFIDA [None]
